FAERS Safety Report 19897714 (Version 1)
Quarter: 2021Q3

REPORT INFORMATION
  Report Type: Spontaneous
  Country: GB (occurrence: GB)
  Receive Date: 20210930
  Receipt Date: 20210930
  Transmission Date: 20211014
  Serious: Yes (Other)
  Sender: FDA-Public Use
  Company Number: GB-SA-2021SA317454

PATIENT
  Age: 30 Year
  Sex: Male
  Weight: 70 kg

DRUGS (1)
  1. FEXOFENADINE HYDROCHLORIDE. [Suspect]
     Active Substance: FEXOFENADINE HYDROCHLORIDE
     Indication: HYPERSENSITIVITY
     Dosage: 120 MG, UNK
     Route: 048
     Dates: start: 20210201, end: 20210815

REACTIONS (1)
  - Hypertonic bladder [Recovered/Resolved]

NARRATIVE: CASE EVENT DATE: 20210520
